FAERS Safety Report 9752534 (Version 1)
Quarter: 2013Q4

REPORT INFORMATION
  Report Type: Spontaneous
  Country: US (occurrence: None)
  Receive Date: 20131212
  Receipt Date: 20131212
  Transmission Date: 20140711
  Serious: No
  Sender: FDA-Public Use
  Company Number: None

PATIENT
  Age: 54 None
  Sex: Female

DRUGS (6)
  1. AUBAGIO TAB [Suspect]
     Indication: MULTIPLE SCLEROSIS
     Route: 048
  2. LIPITOR [Concomitant]
  3. DITROPAN [Concomitant]
  4. LOSARTAN [Concomitant]
  5. DEXILANT [Concomitant]
  6. AMLODIPINE [Concomitant]

REACTIONS (1)
  - Alopecia [None]
